FAERS Safety Report 4289339-0 (Version None)
Quarter: 2004Q1

REPORT INFORMATION
  Report Type: 
  Country: None (occurrence: None)
  Receive Date: 20040206
  Receipt Date: 20040130
  Transmission Date: 20041129
  Serious: Yes (Other)
  Sender: FDA-Public Use
  Company Number: CH-JNJFOC-20040200029

PATIENT
  Age: 83 Year
  Sex: Male
  Weight: 57 kg

DRUGS (4)
  1. DURAGESIC [Suspect]
     Indication: PAIN
     Dosage: 25 UG/HR, TRANSDERMAL
     Route: 062
  2. SPERSACARPIN (PILOCARPINE HYDROCHLORIDE) [Concomitant]
  3. ALPHAGAN [Concomitant]
  4. XALATAN (LATANOPROST) DROPS [Concomitant]

REACTIONS (1)
  - INAPPROPRIATE ANTIDIURETIC HORMONE SECRETION [None]
